FAERS Safety Report 7399369-8 (Version None)
Quarter: 2011Q2

REPORT INFORMATION
  Report Type: 
  Country: None (occurrence: None)
  Receive Date: 20110407
  Receipt Date: 20110330
  Transmission Date: 20111010
  Serious: Yes (Other)
  Sender: FDA-Public Use
  Company Number: AU-NOVOPROD-322525

PATIENT
  Age: 49 Year
  Sex: Female

DRUGS (3)
  1. NOVORAPID [Suspect]
     Indication: TYPE 2 DIABETES MELLITUS
     Dosage: 5 U, TID
     Route: 058
     Dates: start: 20101228, end: 20101228
  2. LANTUS [Concomitant]
     Indication: TYPE 2 DIABETES MELLITUS
     Dosage: 40 U, QD, NOCTE
  3. APIDRA [Concomitant]
     Indication: TYPE 2 DIABETES MELLITUS

REACTIONS (7)
  - PRURITUS [None]
  - RASH [None]
  - DYSPNOEA [None]
  - LIP SWELLING [None]
  - INJECTION SITE PRURITUS [None]
  - SWOLLEN TONGUE [None]
  - INJECTION SITE RASH [None]
